FAERS Safety Report 9067852 (Version 5)
Quarter: 2015Q3

REPORT INFORMATION
  Report Type: Spontaneous
  Country: AU (occurrence: AU)
  Receive Date: 20130215
  Receipt Date: 20150702
  Transmission Date: 20151125
  Serious: Yes (Death, Life-Threatening, Hospitalization)
  Sender: FDA-Public Use
  Company Number: AU-BIOGENIDEC-2013BI012668

PATIENT
  Age: 28 Year
  Sex: Male

DRUGS (11)
  1. TYSABRI [Suspect]
     Active Substance: NATALIZUMAB
     Indication: MULTIPLE SCLEROSIS
     Route: 042
     Dates: start: 201206, end: 20130110
  2. SENNA [Concomitant]
     Active Substance: SENNA LEAF\SENNOSIDES\SENNOSIDES A AND B
  3. BACLOFEN. [Concomitant]
     Active Substance: BACLOFEN
  4. RANITIDINE [Concomitant]
     Active Substance: RANITIDINE\RANITIDINE HYDROCHLORIDE
  5. PARACETAMOL [Concomitant]
     Active Substance: ACETAMINOPHEN
  6. BACLOFEN. [Concomitant]
     Active Substance: BACLOFEN
  7. COLOXYL [Concomitant]
     Active Substance: DOCUSATE SODIUM
  8. MOVICOL [Concomitant]
     Active Substance: POLYETHYLENE GLYCOL 3350\POTASSIUM CHLORIDE\SODIUM BICARBONATE\SODIUM CHLORIDE
  9. ENOXAPARIN [Concomitant]
     Active Substance: ENOXAPARIN
  10. BACTRIM DS [Concomitant]
     Active Substance: SULFAMETHOXAZOLE\TRIMETHOPRIM
  11. VALACICLOVIR [Concomitant]
     Active Substance: VALACYCLOVIR HYDROCHLORIDE

REACTIONS (4)
  - Oropharyngeal candidiasis [Unknown]
  - Balanitis candida [Unknown]
  - Candiduria [Unknown]
  - Diffuse large B-cell lymphoma [Fatal]

NARRATIVE: CASE EVENT DATE: 201301
